FAERS Safety Report 9172768 (Version 1)
Quarter: 2012Q4

REPORT INFORMATION
  Report Type: 
  Country: NL (occurrence: NL)
  Receive Date: 20120911
  Receipt Date: 20120911
  Transmission Date: 20130627
  Serious: Yes (Other)
  Sender: FDA-Public Use
  Company Number: NL-PFIZER INC-2012205477

PATIENT
  Sex: Female
  Weight: 73 kg

DRUGS (16)
  1. LIPITOR [Suspect]
     Indication: HYPERCHOLESTEROLAEMIA
     Dosage: 10 mg, UNK
     Route: 048
     Dates: start: 19991217
  2. LIPITOR [Suspect]
     Dosage: 20 mg, UNK
  3. LIPITOR [Suspect]
     Dosage: 40 mg, UNK
     Dates: start: 20120607
  4. HYPROMELLOSE [Suspect]
     Dosage: 1 Gtt, UNK
     Dates: start: 20101118
  5. HYPROMELLOSE [Suspect]
     Dosage: UNK
     Dates: start: 2012
  6. LORAZEPAM [Concomitant]
     Dosage: 1 mg, 1x/day
  7. SYMBICORT [Concomitant]
     Dosage: UNK
     Dates: start: 2006
  8. PANTOPRAZOL [Concomitant]
     Dosage: UNK
  9. ARTHROTEC [Concomitant]
  10. ATORVASTATIN [Concomitant]
     Dosage: UNK
  11. AMOXICILLIN [Concomitant]
     Dosage: 1 DF, 3x/day
     Dates: start: 20101111
  12. CODEINE PHOSPHATE [Concomitant]
     Dosage: UNK
  13. IBUPROFEN [Concomitant]
     Dosage: UNK
  14. AMOXICILLIN TRIHYDRATE/CLAVULANIC ACID [Concomitant]
     Dosage: UNK
  15. DOXYCYCLINE [Concomitant]
     Dosage: 1 DF, 1x/day
     Dates: start: 20101029, end: 20101105
  16. DICLOFENAC POTASSIUM [Concomitant]
     Dosage: 1 Gtt, 3x/day

REACTIONS (3)
  - Retinal telangiectasia [Not Recovered/Not Resolved]
  - Eye disorder [Unknown]
  - Dry eye [Not Recovered/Not Resolved]
